FAERS Safety Report 23101664 (Version 1)
Quarter: 2023Q4

REPORT INFORMATION
  Report Type: Spontaneous
  Country: US (occurrence: US)
  Receive Date: 20231025
  Receipt Date: 20231025
  Transmission Date: 20240109
  Serious: No
  Sender: FDA-Public Use
  Company Number: US-BRISTOL-MYERS SQUIBB COMPANY-2023-149891

PATIENT
  Age: 15 Year
  Sex: Male
  Weight: 91.2 kg

DRUGS (1)
  1. CAMZYOS [Suspect]
     Active Substance: MAVACAMTEN
     Indication: Hypertrophic cardiomyopathy
     Route: 048
     Dates: start: 20230824

REACTIONS (2)
  - Off label use [Unknown]
  - Circumstance or information capable of leading to medication error [Unknown]
